FAERS Safety Report 6524937-2 (Version None)
Quarter: 2010Q1

REPORT INFORMATION
  Report Type: 
  Country: None (occurrence: None)
  Receive Date: 20100104
  Receipt Date: 20091221
  Transmission Date: 20100710
  Serious: Yes (Hospitalization)
  Sender: FDA-Public Use
  Company Number: NL-PFIZER INC-2009312903

PATIENT
  Age: 66 Year
  Sex: Male

DRUGS (2)
  1. ARTHROTEC [Suspect]
     Indication: MYALGIA
     Dosage: UNK
     Dates: start: 20091202, end: 20091205
  2. CLARITHROMYCIN [Suspect]
     Indication: PNEUMONIA
     Dosage: 250 MG, 2X/DAY
     Dates: start: 20091125, end: 20091202

REACTIONS (1)
  - RHABDOMYOLYSIS [None]
